FAERS Safety Report 23100445 (Version 1)
Quarter: 2023Q4

REPORT INFORMATION
  Report Type: Spontaneous
  Country: US (occurrence: None)
  Receive Date: 20231020
  Receipt Date: 20231020
  Transmission Date: 20240109
  Serious: Yes (Hospitalization)
  Sender: FDA-Public Use
  Company Number: None

PATIENT
  Age: 74 Year
  Sex: Male
  Weight: 99.9 kg

DRUGS (1)
  1. MOLNUPIRAVIR [Suspect]
     Active Substance: MOLNUPIRAVIR
     Dosage: FREQUENCY : TWICE A WEEK;?
     Route: 048
     Dates: start: 20230211, end: 20230215

REACTIONS (3)
  - Diarrhoea [None]
  - Hypovolaemia [None]
  - Hypotension [None]

NARRATIVE: CASE EVENT DATE: 20230216
